FAERS Safety Report 21926416 (Version 1)
Quarter: 2023Q1

REPORT INFORMATION
  Report Type: Spontaneous
  Country: US (occurrence: US)
  Receive Date: 20230130
  Receipt Date: 20230130
  Transmission Date: 20230417
  Serious: Yes (Other)
  Sender: FDA-Public Use
  Company Number: US-AMGEN-USASP2023012474

PATIENT
  Age: 97 Year
  Sex: Female

DRUGS (2)
  1. PROLIA [Suspect]
     Active Substance: DENOSUMAB
     Indication: Bone density abnormal
     Dosage: 60 MILLIGRAM, Q6MO
     Route: 058
     Dates: start: 2017, end: 2020
  2. PROLIA [Suspect]
     Active Substance: DENOSUMAB
     Indication: Spinal fracture

REACTIONS (5)
  - Breast cancer recurrent [Unknown]
  - Spinal fracture [Unknown]
  - Nerve compression [Unknown]
  - COVID-19 [Unknown]
  - Dry skin [Unknown]

NARRATIVE: CASE EVENT DATE: 20220101
